FAERS Safety Report 7022217-2 (Version None)
Quarter: 2010Q3

REPORT INFORMATION
  Report Type: 
  Country: None (occurrence: None)
  Receive Date: 20100930
  Receipt Date: 20100916
  Transmission Date: 20110219
  Serious: No
  Sender: FDA-Public Use
  Company Number: CA-ELI_LILLY_AND_COMPANY-CA201009004440

PATIENT
  Sex: Male

DRUGS (4)
  1. ZYPREXA [Suspect]
     Dosage: 5 MG, EACH EVENING
     Dates: start: 19980629, end: 19980919
  2. ZYPREXA [Suspect]
     Dosage: 10 MG, EACH EVENING
     Dates: start: 19980920
  3. CHLORPROMAZINE [Concomitant]
  4. SYNTHROID [Concomitant]
     Dosage: 0.125 MG, DAILY (1/D)

REACTIONS (6)
  - BLOOD CREATINE PHOSPHOKINASE INCREASED [None]
  - BLOOD CREATININE INCREASED [None]
  - HAEMATOCRIT DECREASED [None]
  - HYPERGLYCAEMIA [None]
  - PLATELET COUNT DECREASED [None]
  - TYPE 2 DIABETES MELLITUS [None]
